FAERS Safety Report 9691825 (Version 1)
Quarter: 2013Q4

REPORT INFORMATION
  Report Type: Spontaneous
  Country: DE (occurrence: DE)
  Receive Date: 20131116
  Receipt Date: 20131116
  Transmission Date: 20140711
  Serious: Yes (Hospitalization, Other)
  Sender: FDA-Public Use
  Company Number: GXKR2013DE003563

PATIENT
  Sex: Female

DRUGS (4)
  1. VERAPAMIL 1A PHARMA [Suspect]
     Indication: ATRIAL FIBRILLATION
     Dosage: 120 MG, BID
     Route: 048
  2. VERAPAMIL [Suspect]
  3. XARELTO [Concomitant]
     Route: 048
  4. MARCUMAR [Concomitant]

REACTIONS (2)
  - Bone marrow toxicity [Unknown]
  - Thrombocytopenia [Recovering/Resolving]
